FAERS Safety Report 17193232 (Version 4)
Quarter: 2022Q1

REPORT INFORMATION
  Report Type: Spontaneous
  Country: JP (occurrence: JP)
  Receive Date: 20191223
  Receipt Date: 20220311
  Transmission Date: 20220423
  Serious: Yes (Other)
  Sender: FDA-Public Use
  Company Number: JP-JNJFOC-20180608042

PATIENT
  Age: 6 Decade
  Sex: Female

DRUGS (5)
  1. NIZORAL [Suspect]
     Active Substance: KETOCONAZOLE
     Indication: Vulvovaginal candidiasis
     Dosage: UNKNOWN
     Route: 061
  2. NIZORAL [Suspect]
     Active Substance: KETOCONAZOLE
     Dosage: IN THE MORNING OR EVENING
     Route: 061
  3. NIZORAL [Suspect]
     Active Substance: KETOCONAZOLE
     Route: 061
  4. GENTAMICIN SULFATE [Concomitant]
     Active Substance: GENTAMICIN SULFATE
     Indication: Vulvovaginal candidiasis
     Route: 061
  5. SULFAMETHOXAZOLE\TRIMETHOPRIM [Concomitant]
     Active Substance: SULFAMETHOXAZOLE\TRIMETHOPRIM
     Route: 048
     Dates: start: 2013

REACTIONS (10)
  - Diabetes mellitus [Unknown]
  - Renal impairment [Unknown]
  - Urine abnormality [Unknown]
  - Product use in unapproved indication [Unknown]
  - Off label use [Unknown]
  - Product prescribing error [Unknown]
  - Cystitis [Unknown]
  - Manufacturing materials issue [Unknown]
  - Inappropriate schedule of product administration [Unknown]
  - Oophorectomy bilateral [Unknown]
